FAERS Safety Report 7561473-9 (Version None)
Quarter: 2011Q2

REPORT INFORMATION
  Report Type: 
  Country: None (occurrence: None)
  Receive Date: 20110621
  Receipt Date: 20110614
  Transmission Date: 20111010
  Serious: Yes (Life-Threatening, Hospitalization, Other)
  Sender: FDA-Public Use
  Company Number: DE-CELGENEUS-062-21880-10030136

PATIENT
  Age: 38 Year
  Sex: Female
  Weight: 75 kg

DRUGS (8)
  1. REVLIMID [Suspect]
     Indication: MULTIPLE MYELOMA
     Dosage: 25 MILLIGRAM
     Route: 048
     Dates: start: 20091101, end: 20100101
  2. LEVOTHYROXINE SODIUM [Concomitant]
     Dosage: 75 MICROGRAM
     Route: 065
  3. ENOXAPARIN [Concomitant]
     Dosage: .4 MILLILITER
     Route: 065
  4. FUROSEMIDE [Concomitant]
     Route: 048
  5. ACYCLOVIR [Concomitant]
     Indication: ANTIVIRAL PROPHYLAXIS
     Dosage: 1600 MILLIGRAM
     Route: 065
  6. COTRIM [Concomitant]
     Dosage: 1920 MILLIGRAM
     Route: 065
  7. REVLIMID [Suspect]
     Dosage: 10 MILLIGRAM
     Route: 048
     Dates: start: 20100222
  8. DEXAMETHASONE [Concomitant]
     Indication: MULTIPLE MYELOMA
     Dosage: 5.7143 MILLIGRAM
     Route: 065

REACTIONS (1)
  - PERICARDIAL EFFUSION [None]
